FAERS Safety Report 9190860 (Version 2)
Quarter: 2013Q1

REPORT INFORMATION
  Report Type: Spontaneous
  Country: DE (occurrence: DE)
  Receive Date: 20130326
  Receipt Date: 20130326
  Transmission Date: 20140127
  Serious: Yes (Hospitalization)
  Sender: FDA-Public Use
  Company Number: DE-ROCHE-1100797

PATIENT
  Age: 68 Year
  Sex: Male
  Weight: 72 kg

DRUGS (9)
  1. AVASTIN [Suspect]
     Indication: COLON CANCER
     Route: 042
     Dates: start: 20081006
  2. IRINOTECAN [Suspect]
     Indication: COLON CANCER
     Route: 042
     Dates: start: 20101116
  3. 5-FU [Suspect]
     Indication: COLON CANCER
     Route: 042
     Dates: start: 20101116
  4. ANTI-EMETIC [Suspect]
     Indication: PREMEDICATION
     Route: 065
  5. STEROID [Suspect]
     Indication: PREMEDICATION
     Route: 065
  6. CITALOPRAM [Concomitant]
     Indication: DEPRESSION
     Route: 048
     Dates: start: 20100803
  7. TESTOGEL [Concomitant]
     Route: 061
     Dates: start: 20120109
  8. OMEPRAZOLE [Concomitant]
     Route: 048
     Dates: start: 20081006
  9. BISOPROLOL [Concomitant]
     Indication: HYPERTENSION
     Route: 048
     Dates: start: 20110329

REACTIONS (1)
  - Varicella [Unknown]
